FAERS Safety Report 9932737 (Version 1)
Quarter: 2014Q1

REPORT INFORMATION
  Report Type: Spontaneous
  Country: US (occurrence: US)
  Receive Date: 20140228
  Receipt Date: 20140228
  Transmission Date: 20141002
  Serious: No
  Sender: FDA-Public Use
  Company Number: US-GLAXOSMITHKLINE-A1029809A

PATIENT
  Age: 56 Year
  Sex: Female

DRUGS (5)
  1. SUMATRIPTAN SUCCINATE [Suspect]
     Indication: MIGRAINE
     Dosage: 6MG AS REQUIRED
     Route: 058
     Dates: start: 1973
  2. IMITREX [Suspect]
  3. GSK AUTOINJECTOR [Suspect]
     Indication: MIGRAINE
     Route: 058
  4. TRAZODONE [Concomitant]
  5. QVAR [Concomitant]

REACTIONS (5)
  - Drug ineffective [Unknown]
  - Product quality issue [Unknown]
  - Nausea [Unknown]
  - Hot flush [Unknown]
  - Paraesthesia [Unknown]
